FAERS Safety Report 16146658 (Version 1)
Quarter: 2019Q2

REPORT INFORMATION
  Report Type: Spontaneous
  Country: BR (occurrence: BR)
  Receive Date: 20190402
  Receipt Date: 20190402
  Transmission Date: 20190711
  Serious: Yes (Other)
  Sender: FDA-Public Use
  Company Number: BR-BAYER-2019-059930

PATIENT
  Age: 65 Year
  Sex: Male

DRUGS (1)
  1. ASPIRINA 100 MG [Suspect]
     Active Substance: ASPIRIN
     Indication: ANTICOAGULANT THERAPY
     Dosage: 2 DF, QD
     Route: 048
     Dates: start: 201709, end: 201809

REACTIONS (1)
  - Cardiac operation [None]

NARRATIVE: CASE EVENT DATE: 201809
